FAERS Safety Report 26006702 (Version 1)
Quarter: 2025Q4

REPORT INFORMATION
  Report Type: Spontaneous
  Country: JP (occurrence: JP)
  Receive Date: 20251106
  Receipt Date: 20251106
  Transmission Date: 20260118
  Serious: Yes (Death, Other)
  Sender: MERCK SHARP & DOHME LLC
  Company Number: JP-009507513-2346639

PATIENT
  Age: 8 Decade
  Sex: Male

DRUGS (1)
  1. PEMBROLIZUMAB [Suspect]
     Active Substance: PEMBROLIZUMAB
     Indication: Gallbladder cancer

REACTIONS (5)
  - Malignant neoplasm progression [Fatal]
  - Infusion related reaction [Unknown]
  - Cholangitis [Unknown]
  - Vomiting [Unknown]
  - Diarrhoea [Recovered/Resolved]
